FAERS Safety Report 6848315-1 (Version None)
Quarter: 2010Q3

REPORT INFORMATION
  Report Type: 
  Country: None (occurrence: None)
  Receive Date: 20100716
  Receipt Date: 20100707
  Transmission Date: 20110219
  Serious: Yes (Hospitalization)
  Sender: FDA-Public Use
  Company Number: FR-ROCHE-712863

PATIENT
  Sex: Male
  Weight: 67 kg

DRUGS (8)
  1. BEVACIZUMAB [Suspect]
     Indication: NON-SMALL CELL LUNG CANCER
     Dosage: LAST DOSE PRIOR TO SAE RECEIVED ON 10 JUNE 2010
     Route: 042
     Dates: start: 20100514
  2. PACLITAXEL [Suspect]
     Indication: NON-SMALL CELL LUNG CANCER
     Dosage: LAST DOSE PRIOR TO SAE: 10 JUNE 2010
     Route: 042
     Dates: start: 20100514
  3. CARBOPLATIN [Suspect]
     Indication: NON-SMALL CELL LUNG CANCER
     Dosage: LAST DOSE PRIOR TO SAE: 10 JUNE 2010
     Route: 042
     Dates: start: 20100514
  4. POLARAMINE [Concomitant]
     Dates: start: 20100514
  5. KYTRIL [Concomitant]
     Dates: start: 20100514
  6. METHYLPREDNISOLONE [Concomitant]
     Dosage: DRUG REPORTED AS METHLYPREDNISONE
     Dates: start: 20100514
  7. RANITIDINE HCL [Concomitant]
     Dates: start: 20100514
  8. SOLUPRED [Concomitant]
     Dates: start: 20100514

REACTIONS (1)
  - FEBRILE BONE MARROW APLASIA [None]
